FAERS Safety Report 5281848-0 (Version None)
Quarter: 2007Q1

REPORT INFORMATION
  Report Type: 
  Country: None (occurrence: None)
  Receive Date: 20070330
  Receipt Date: 20070125
  Transmission Date: 20070707
  Serious: Yes (Other)
  Sender: FDA-Public Use
  Company Number: GB-ROCHE-474386

PATIENT
  Age: 74 Year
  Sex: Female
  Weight: 117.5 kg

DRUGS (10)
  1. XENICAL [Suspect]
     Indication: OBESITY
     Route: 048
     Dates: start: 20061124, end: 20061203
  2. METFORMIN [Concomitant]
     Route: 048
     Dates: start: 20030615
  3. OMEPRAZOLE [Concomitant]
     Route: 048
  4. AMLODIPINE [Concomitant]
     Route: 048
  5. RAMIPRIL [Concomitant]
     Indication: BLOOD PRESSURE
     Route: 065
     Dates: start: 20040615
  6. SIMVASTATIN [Concomitant]
     Dates: start: 20050615
  7. INSULIN [Concomitant]
     Route: 058
     Dates: start: 20040615
  8. CO-CODAMOL [Concomitant]
     Route: 048
     Dates: start: 20040615
  9. FRUSEMIDE [Concomitant]
     Dates: start: 20040615
  10. RABEPRAZOLE SODIUM [Concomitant]
     Indication: PAIN
     Route: 048
     Dates: start: 20030615

REACTIONS (1)
  - PROCEDURAL PAIN [None]
